FAERS Safety Report 6629992-7 (Version None)
Quarter: 2010Q1

REPORT INFORMATION
  Report Type: 
  Country: None (occurrence: None)
  Receive Date: 20100311
  Receipt Date: 20090706
  Transmission Date: 20100710
  Serious: No
  Sender: FDA-Public Use
  Company Number: US-BIOGENIDEC-2009BI018660

PATIENT
  Sex: Female

DRUGS (9)
  1. AVONEX [Suspect]
     Indication: MULTIPLE SCLEROSIS
     Route: 030
     Dates: start: 19990101, end: 20081101
  2. ASPIRIN [Concomitant]
     Indication: PREMEDICATION
  3. TYLENOL-500 [Concomitant]
     Indication: PREMEDICATION
  4. MULTI-VITAMINS [Concomitant]
     Route: 048
  5. ASPIR-81 [Concomitant]
     Route: 048
  6. FOSINOPRIL SODIUM [Concomitant]
     Route: 048
  7. LOVASTATIN [Concomitant]
     Route: 048
  8. METFORMIN HCL [Concomitant]
     Route: 048
  9. CALTRATE 600 PLUS- VITAMIN D [Concomitant]
     Route: 048

REACTIONS (6)
  - ANXIETY [None]
  - BALANCE DISORDER [None]
  - DIZZINESS [None]
  - FATIGUE [None]
  - NASAL NEOPLASM [None]
  - PARAESTHESIA [None]
